FAERS Safety Report 17894717 (Version 1)
Quarter: 2020Q2

REPORT INFORMATION
  Report Type: Spontaneous
  Country: GB (occurrence: GB)
  Receive Date: 20200615
  Receipt Date: 20200615
  Transmission Date: 20200714
  Serious: Yes (Disabling)
  Sender: FDA-Public Use
  Company Number: GB-JNJFOC-20200609700

PATIENT
  Age: 41 Year
  Sex: Male
  Weight: 93.88 kg

DRUGS (1)
  1. TOPAMAX [Suspect]
     Active Substance: TOPIRAMATE
     Indication: MIGRAINE PROPHYLAXIS
     Route: 048
     Dates: start: 20200423, end: 20200513

REACTIONS (4)
  - Photophobia [Recovering/Resolving]
  - Drug ineffective [Unknown]
  - Product substitution issue [Unknown]
  - Migraine with aura [Recovered/Resolved]

NARRATIVE: CASE EVENT DATE: 20200426
